FAERS Safety Report 22103904 (Version 1)
Quarter: 2023Q1

REPORT INFORMATION
  Report Type: Spontaneous
  Country: US (occurrence: None)
  Receive Date: 20230315
  Receipt Date: 20230315
  Transmission Date: 20230418
  Serious: Yes (Hospitalization, Disabling)
  Sender: FDA-Public Use
  Company Number: None

PATIENT
  Age: 71 Year
  Sex: Female
  Weight: 61.42 kg

DRUGS (10)
  1. TASIGNA [Suspect]
     Active Substance: NILOTINIB
     Indication: Myeloid leukaemia
     Dosage: 2 CAPSULES TWICE DAILY ORALLY?
     Route: 048
     Dates: start: 20220826
  2. ASPIRIN  EC LOW DOSE [Concomitant]
  3. L-LYSINE [Concomitant]
  4. BIOTIN [Concomitant]
  5. CALCIUM\VITAMIN D [Concomitant]
     Active Substance: CALCIUM\VITAMIN D
  6. MULTIPLE VITAMIN [Concomitant]
  7. CYANOCOBALAMIN\DEXPANTHENOL\NIACINAMIDE\PYRIDOXINE HYDROCHLORIDE\RIBOF [Concomitant]
     Active Substance: CYANOCOBALAMIN\DEXPANTHENOL\NIACINAMIDE\PYRIDOXINE HYDROCHLORIDE\RIBOFLAVIN 5^-PHOSPHATE SODIUM\THIA
  8. VITAMIN C [Concomitant]
     Active Substance: ASCORBIC ACID
  9. ZINC [Concomitant]
     Active Substance: ZINC
  10. BENADRYL [Concomitant]
     Active Substance: DIPHENHYDRAMINE HYDROCHLORIDE

REACTIONS (4)
  - Diarrhoea [None]
  - Dehydration [None]
  - Renal injury [None]
  - Dyspnoea [None]

NARRATIVE: CASE EVENT DATE: 20230227
